FAERS Safety Report 13076905 (Version 1)
Quarter: 2016Q4

REPORT INFORMATION
  Report Type: Spontaneous
  Country: IT (occurrence: IT)
  Receive Date: 20161230
  Receipt Date: 20161230
  Transmission Date: 20170207
  Serious: Yes (Other)
  Sender: FDA-Public Use
  Company Number: IT-MYLANLABS-2016M1057963

PATIENT

DRUGS (6)
  1. VINCRISTINE SULFATE. [Concomitant]
     Active Substance: VINCRISTINE SULFATE
     Indication: MYCOSIS FUNGOIDES
  2. ETOPOSIDE. [Concomitant]
     Active Substance: ETOPOSIDE
     Indication: MYCOSIS FUNGOIDES
  3. BEXAROTENE. [Concomitant]
     Active Substance: BEXAROTENE
     Indication: HEPATIC FUNCTION ABNORMAL
     Dosage: 225 MG, QD
  4. CYCLOPHOSPHAMIDE. [Concomitant]
     Active Substance: CYCLOPHOSPHAMIDE
     Indication: MYCOSIS FUNGOIDES
  5. PREDNISONE. [Concomitant]
     Active Substance: PREDNISONE
     Indication: MYCOSIS FUNGOIDES
  6. DOXORUBICIN [Suspect]
     Active Substance: DOXORUBICIN
     Indication: MYCOSIS FUNGOIDES

REACTIONS (3)
  - Pancytopenia [Unknown]
  - Off label use [Unknown]
  - Product use issue [Unknown]
